FAERS Safety Report 5005855-8 (Version None)
Quarter: 2006Q2

REPORT INFORMATION
  Report Type: 
  Country: None (occurrence: None)
  Receive Date: 20060517
  Receipt Date: 20060517
  Transmission Date: 20061013
  Serious: Yes (Other)
  Sender: FDA-Public Use
  Company Number: None

PATIENT
  Sex: Female
  Weight: 83.9154 kg

DRUGS (1)
  1. ACTONEL [Suspect]
     Indication: BONE DISORDER
     Dosage: 35 MG # 4 ONCE A WEEK
     Dates: start: 20051106

REACTIONS (5)
  - BONE PAIN [None]
  - FEELING ABNORMAL [None]
  - MUSCLE SPASMS [None]
  - MYALGIA [None]
  - PAIN [None]
